FAERS Safety Report 8642981 (Version 3)
Quarter: 2012Q4

REPORT INFORMATION
  Report Type: Report from Study
  Country: GB (occurrence: GB)
  Receive Date: 20120629
  Receipt Date: 20120918
  Transmission Date: 20130627
  Serious: Yes (Hospitalization)
  Sender: FDA-Public Use
  Company Number: GB-JNJFOC-20120610590

PATIENT
  Age: 17 Year
  Sex: Male
  Weight: 44.5 kg

DRUGS (2)
  1. REMICADE [Suspect]
     Indication: CROHN^S DISEASE
     Route: 042
     Dates: start: 20110203
  2. OMEPRAZOLE [Concomitant]
     Route: 042

REACTIONS (1)
  - Device occlusion [Recovered/Resolved]
